FAERS Safety Report 23676590 (Version 2)
Quarter: 2024Q2

REPORT INFORMATION
  Report Type: Spontaneous
  Country: US (occurrence: US)
  Receive Date: 20240327
  Receipt Date: 20240412
  Transmission Date: 20240715
  Serious: No
  Sender: FDA-Public Use
  Company Number: US-BIOVITRUM-2024-US-004731

PATIENT
  Age: 72 Year
  Sex: Female

DRUGS (2)
  1. KINERET [Suspect]
     Active Substance: ANAKINRA
     Indication: Product used for unknown indication
     Dosage: DAILY
     Route: 058
     Dates: start: 20240314
  2. KINERET [Suspect]
     Active Substance: ANAKINRA
     Dosage: TWICE A DAY (BID)
     Route: 058
     Dates: start: 20240314

REACTIONS (12)
  - Hot flush [Unknown]
  - Sleep disorder [Unknown]
  - Hyperhidrosis [Unknown]
  - Discomfort [Unknown]
  - Mental fatigue [Unknown]
  - Fatigue [Unknown]
  - Arthralgia [Unknown]
  - Arthritis [Unknown]
  - Trigger finger [Unknown]
  - Headache [Unknown]
  - Complex regional pain syndrome [Unknown]
  - Cough [Unknown]
